FAERS Safety Report 9725963 (Version 1)
Quarter: 2013Q4

REPORT INFORMATION
  Report Type: Spontaneous
  Country: GB (occurrence: GB)
  Receive Date: 20131203
  Receipt Date: 20131203
  Transmission Date: 20140711
  Serious: Yes (Death, Hospitalization, Other)
  Sender: FDA-Public Use
  Company Number: GB-ABBVIE-13P-167-1175133-00

PATIENT
  Age: 66 Year
  Sex: Male

DRUGS (13)
  1. DEPAKOTE [Suspect]
     Indication: SCHIZOPHRENIA
     Dosage: 1000 MG DAILY
     Route: 048
     Dates: end: 20060420
  2. DEPAKOTE [Suspect]
     Dosage: 500 MG DAILY
     Route: 048
     Dates: start: 20060420
  3. CHLORPROMAZINE [Suspect]
     Indication: SCHIZOPHRENIA
     Dosage: 25 MG DAILY
     Route: 048
     Dates: start: 19970422
  4. CLOZARIL [Suspect]
     Indication: SCHIZOPHRENIA
     Dosage: 200 MG DAILY
     Route: 048
     Dates: start: 20010701
  5. CLOMIPRAMINE [Suspect]
     Indication: SCHIZOPHRENIA
     Dosage: 100 MG DAILY
     Route: 048
  6. CLOMIPRAMINE [Suspect]
     Dosage: 75 MG DAILY
     Route: 048
     Dates: start: 19970422
  7. FLUDROCORTISONE [Concomitant]
     Indication: PRODUCT USED FOR UNKNOWN INDICATION
     Dates: start: 20101222
  8. LANSOPRAZOLE [Concomitant]
     Indication: PRODUCT USED FOR UNKNOWN INDICATION
  9. MELOXICAM [Concomitant]
     Indication: PRODUCT USED FOR UNKNOWN INDICATION
  10. PROCYCLIDINE [Concomitant]
     Indication: PRODUCT USED FOR UNKNOWN INDICATION
     Dates: start: 19980109
  11. LAXIDO [Concomitant]
     Indication: PRODUCT USED FOR UNKNOWN INDICATION
     Dates: start: 20120608
  12. RANITIDINE [Concomitant]
     Indication: PRODUCT USED FOR UNKNOWN INDICATION
     Dates: start: 20121123
  13. FERROUS FUMARATE [Concomitant]
     Indication: PRODUCT USED FOR UNKNOWN INDICATION
     Dates: start: 20111121

REACTIONS (7)
  - Fall [Fatal]
  - Myocardial infarction [Fatal]
  - Pneumonia [Fatal]
  - Barrett^s oesophagus [Not Recovered/Not Resolved]
  - Blood creatinine increased [Unknown]
  - Iron deficiency anaemia [Not Recovered/Not Resolved]
  - Prothrombin time shortened [Unknown]
